FAERS Safety Report 9060481 (Version 2)
Quarter: 2013Q1

REPORT INFORMATION
  Report Type: Report from Study
  Country: GB (occurrence: GB)
  Receive Date: 20130212
  Receipt Date: 20130306
  Transmission Date: 20140127
  Serious: Yes (Congenital Anomaly)
  Sender: FDA-Public Use
  Company Number: GB-GILEAD-2013-0069784

PATIENT
  Sex: Female

DRUGS (2)
  1. EMTRICITABINE/TENOFOVIR DISOPROXIL FUMARATE [Suspect]
     Dosage: 1 DF, QD
     Route: 064
     Dates: start: 20100429
  2. NEVIRAPINE [Concomitant]
     Dosage: 400 MG, QD
     Route: 064
     Dates: start: 20010906

REACTIONS (1)
  - No adverse event [Unknown]
